FAERS Safety Report 20608074 (Version 1)
Quarter: 2022Q1

REPORT INFORMATION
  Report Type: Report from Study
  Country: US (occurrence: US)
  Receive Date: 20220317
  Receipt Date: 20220317
  Transmission Date: 20220423
  Serious: Yes (Other)
  Sender: FDA-Public Use
  Company Number: US-SA-2022SA082619

PATIENT
  Age: 57 Year
  Sex: Female

DRUGS (1)
  1. AVALGLUCOSIDASE ALFA-NGPT [Suspect]
     Active Substance: AVALGLUCOSIDASE ALFA-NGPT
     Indication: Glycogen storage disease type II
     Dosage: 2000 MG, QOW
     Route: 041
     Dates: start: 20211209

REACTIONS (3)
  - Angina pectoris [Recovered/Resolved]
  - Headache [Recovered/Resolved]
  - Vomiting [Recovered/Resolved]

NARRATIVE: CASE EVENT DATE: 20220301
